FAERS Safety Report 8437323-5 (Version None)
Quarter: 2012Q2

REPORT INFORMATION
  Report Type: 
  Country: None (occurrence: None)
  Receive Date: 20120614
  Receipt Date: 20120308
  Transmission Date: 20120825
  Serious: No
  Sender: FDA-Public Use
  Company Number: US-AMGEN-USASP2012012608

PATIENT
  Age: 81 Year
  Sex: Male
  Weight: 100.23 kg

DRUGS (19)
  1. XGEVA [Suspect]
     Indication: PROSTATE CANCER
     Dosage: 120 MG, QWK
     Route: 030
     Dates: start: 20111111, end: 20120119
  2. PERCOCET [Concomitant]
  3. LISINOPRIL [Concomitant]
  4. NIASPAN [Concomitant]
  5. CIPRO [Concomitant]
  6. JANUVIA [Concomitant]
  7. HYDROCHLOROTHIAZIDE [Concomitant]
  8. PROMETHAZINE [Concomitant]
  9. TYLENOL (CAPLET) [Concomitant]
     Dosage: UNK UNK, PRN
     Route: 048
  10. ALPHAGAN [Concomitant]
  11. ATENOLOL [Concomitant]
  12. NIACIN [Concomitant]
  13. NEXIUM [Concomitant]
  14. ADVAIR DISKUS 100/50 [Concomitant]
  15. SIMVASTATIN [Concomitant]
     Dosage: 40 MG, UNK
  16. OXYBUTYNIN [Concomitant]
     Dosage: 5 MG, UNK
  17. PLAVIX [Concomitant]
  18. FLOMAX [Concomitant]
  19. FAMOTIDINE [Concomitant]

REACTIONS (1)
  - RASH MACULAR [None]
